FAERS Safety Report 9804238 (Version 5)
Quarter: 2014Q2

REPORT INFORMATION
  Report Type: Spontaneous
  Country: US (occurrence: None)
  Receive Date: 20140106
  Receipt Date: 20140421
  Transmission Date: 20141212
  Serious: Yes (Other)
  Sender: FDA-Public Use
  Company Number: AEGR000210

PATIENT
  Age: 47 Year
  Sex: Male
  Weight: 142.9 kg

DRUGS (9)
  1. JUXTAPID [Suspect]
     Indication: TYPE IIA HYPERLIPIDAEMIA
     Route: 048
     Dates: start: 20130930, end: 20131127
  2. WELCHOL (COLESEVELAM HYDROCHLORIDE) (625 MILLIGRAM, TABLET) (COLESEVELAM HYDROCHLORIDE) [Concomitant]
  3. ZETIA (EZETIMIBE) [Concomitant]
  4. CRESTOR (ROSUVASTATIN CALCIUM) [Concomitant]
  5. KOMBIGLYZE (METFORMIN HYDROCHLORIDE, SAXAGLIPIN HYDROCHLORIDE) [Concomitant]
  6. LOSARTAN (LOSARTAN POTASSIUM) [Concomitant]
  7. OMEGA 3 (SALMON OIL) [Concomitant]
  8. OMEPRAZOLE (OMEPRAZOLE MAGNESIUM) [Concomitant]
  9. ZYRTEC (CETIRIZINE HYDROCHLORIDE) [Concomitant]

REACTIONS (3)
  - Aspartate aminotransferase increased [None]
  - Alanine aminotransferase increased [None]
  - Blood alkaline phosphatase increased [None]
